FAERS Safety Report 5809124-5 (Version None)
Quarter: 2008Q3

REPORT INFORMATION
  Report Type: 
  Country: None (occurrence: None)
  Receive Date: 20080714
  Receipt Date: 20080703
  Transmission Date: 20090109
  Serious: Yes (Hospitalization, Other)
  Sender: FDA-Public Use
  Company Number: JP-PFIZER INC-2008053942

PATIENT
  Sex: Female
  Weight: 42 kg

DRUGS (16)
  1. ANASTROZOLE [Suspect]
     Indication: BREAST CANCER
     Route: 048
     Dates: start: 20051114, end: 20080527
  2. CALBLOCK [Concomitant]
     Route: 048
  3. MEVALOTIN [Concomitant]
     Route: 048
  4. LENDORMIN [Concomitant]
     Route: 048
  5. KALLIKREIN [Concomitant]
     Route: 048
  6. JUVELA NICOTINATE [Concomitant]
     Route: 048
  7. CIRCULETIN [Concomitant]
     Route: 048
  8. KARY UNI [Concomitant]
     Route: 031
  9. CYANOCOBALAMIN [Concomitant]
     Route: 048
  10. VOLTAREN [Concomitant]
     Route: 061
     Dates: start: 20070306
  11. MOBIC [Concomitant]
     Route: 048
     Dates: start: 20070306
  12. OLMETEC [Concomitant]
     Route: 048
     Dates: start: 20071002
  13. MAGNESIUM OXIDE [Concomitant]
     Route: 048
     Dates: start: 20080108
  14. HYPEN [Concomitant]
     Indication: PAIN
  15. SELBEX [Concomitant]
     Indication: GASTRITIS PROPHYLAXIS
     Dates: start: 20080527
  16. TOREMIFENE CITRATE [Concomitant]
     Indication: BREAST CANCER
     Dates: start: 20080527

REACTIONS (1)
  - CEREBRAL INFARCTION [None]
